FAERS Safety Report 7887499-3 (Version None)
Quarter: 2011Q4

REPORT INFORMATION
  Report Type: 
  Country: None (occurrence: None)
  Receive Date: 20111103
  Receipt Date: 20111025
  Transmission Date: 20120403
  Serious: Yes (Hospitalization)
  Sender: FDA-Public Use
  Company Number: CA-BRISTOL-MYERS SQUIBB COMPANY-16047987

PATIENT
  Age: 66 Year
  Sex: Male
  Weight: 88 kg

DRUGS (6)
  1. ERBITUX [Suspect]
     Indication: HEAD AND NECK CANCER
     Dosage: DAY 1,08-08AUG11:1D:(400MG/M2),29AUG11-29AUG11,19SEP11-ONG(250MG/M2)WK DAYS 1,8+15.INT 06SEP11,RESD
     Route: 042
     Dates: start: 20110808
  2. CENTRUM [Concomitant]
     Indication: SUPPLEMENTATION THERAPY
     Dates: start: 20060101
  3. MINOCYCLINE HCL [Concomitant]
     Indication: RASH
     Dates: start: 20110822
  4. FLUOROURACIL [Suspect]
     Indication: HEAD AND NECK CANCER
     Dosage: LAST DOSE ON 12AUG2011.D1-D4.09AUG11-12AUG11:4 DAYS,RESUMED MONOTHERAPY
     Route: 042
     Dates: start: 20110809, end: 20110813
  5. CISPLATIN [Suspect]
     Indication: HEAD AND NECK CANCER
     Dosage: D1,08-08AUG2011.LAST DOSE ON 12AUG2011,RESUMED MONOTHERAPY
     Route: 042
     Dates: start: 20110808, end: 20110808
  6. ASPIRIN [Concomitant]
     Indication: PROPHYLAXIS
     Dates: start: 20060101

REACTIONS (2)
  - ANAEMIA [None]
  - UPPER GASTROINTESTINAL HAEMORRHAGE [None]
